FAERS Safety Report 4642860-5 (Version None)
Quarter: 2005Q2

REPORT INFORMATION
  Report Type: 
  Country: None (occurrence: None)
  Receive Date: 20050421
  Receipt Date: 20050408
  Transmission Date: 20051028
  Serious: Yes (Other)
  Sender: FDA-Public Use
  Company Number: 2005057403

PATIENT
  Sex: Male

DRUGS (1)
  1. BEXTRA [Suspect]
     Indication: SHOULDER PAIN
     Dosage: 20 MG (10 MG, 2 IN 1 D), ORAL
     Route: 048
     Dates: start: 20050301, end: 20050401

REACTIONS (5)
  - INFLAMMATION [None]
  - RASH GENERALISED [None]
  - RASH PRURITIC [None]
  - RASH SCALY [None]
  - SWELLING [None]
